FAERS Safety Report 12167441 (Version 5)
Quarter: 2016Q4

REPORT INFORMATION
  Report Type: Spontaneous
  Country: US (occurrence: US)
  Receive Date: 20160310
  Receipt Date: 20161021
  Transmission Date: 20170207
  Serious: No
  Sender: FDA-Public Use
  Company Number: US-PFIZER INC-2016021551

PATIENT
  Age: 42 Year
  Sex: Female
  Weight: 67.59 kg

DRUGS (3)
  1. LYRICA [Suspect]
     Active Substance: PREGABALIN
     Indication: SPINAL CORD INJURY
     Dosage: 200 MG, 4X/DAY
     Dates: start: 2011
  2. LYRICA [Suspect]
     Active Substance: PREGABALIN
     Indication: NERVE INJURY
  3. LYRICA [Suspect]
     Active Substance: PREGABALIN
     Indication: PAIN
     Dosage: 200 MG, 4X/DAY
     Route: 048

REACTIONS (8)
  - Back pain [Unknown]
  - Gait disturbance [Unknown]
  - Urticaria [Unknown]
  - Prescribed overdose [Unknown]
  - Screaming [Unknown]
  - Pain in extremity [Unknown]
  - Crying [Unknown]
  - Influenza [Unknown]

NARRATIVE: CASE EVENT DATE: 20160920
